FAERS Safety Report 14245015 (Version 1)
Quarter: 2017Q4

REPORT INFORMATION
  Report Type: Report from Study
  Country: None (occurrence: IL)
  Receive Date: 20171201
  Receipt Date: 20171201
  Transmission Date: 20180321
  Serious: Yes (Hospitalization)
  Sender: FDA-Public Use
  Company Number: IL-ABBVIE-16P-082-1797184-00

PATIENT
  Sex: Female

DRUGS (2)
  1. DUODOPA [Suspect]
     Active Substance: CARBIDOPA\LEVODOPA
     Indication: PARKINSON^S DISEASE
     Dosage: THIS MORNING - 2 ML, MAINTENANCE - 2 ML, EXTRA DOSE - 0.3 ML
     Route: 050
     Dates: start: 20110807
  2. DUODOPA [Suspect]
     Active Substance: CARBIDOPA\LEVODOPA
     Dosage: CURRENT MD 2.1ML,?CURRENT CD 3ML/HOUR,?CURRENT ND 1.8ML?CURRENT EXTRA DOSE 0.3ML.
     Route: 050

REACTIONS (4)
  - Hypersensitivity [Recovering/Resolving]
  - Intentional product misuse [Recovering/Resolving]
  - Dyskinesia [Recovering/Resolving]
  - Insomnia [Recovering/Resolving]
